FAERS Safety Report 8320586-4 (Version None)
Quarter: 2012Q2

REPORT INFORMATION
  Report Type: 
  Country: None (occurrence: None)
  Receive Date: 20120430
  Receipt Date: 20120424
  Transmission Date: 20120825
  Serious: Yes (Other)
  Sender: FDA-Public Use
  Company Number: CO-PFIZER INC-2012013037

PATIENT
  Age: 44 Year
  Sex: Female

DRUGS (1)
  1. LYRICA [Suspect]
     Indication: MYALGIA
     Dosage: 75 MG ONCE DAILY
     Route: 048
     Dates: start: 20120112

REACTIONS (5)
  - NAUSEA [None]
  - HEAD DISCOMFORT [None]
  - TONGUE DRY [None]
  - DRY MOUTH [None]
  - HYPOAESTHESIA [None]
